FAERS Safety Report 4294382-1 (Version None)
Quarter: 2004Q1

REPORT INFORMATION
  Report Type: 
  Country: None (occurrence: None)
  Receive Date: 20040211
  Receipt Date: 20040129
  Transmission Date: 20041129
  Serious: Yes (Hospitalization)
  Sender: FDA-Public Use
  Company Number: MK200402-0073-1

PATIENT
  Sex: 0

DRUGS (1)
  1. ANAFRANIL CAP [Suspect]

REACTIONS (3)
  - CONGENITAL ANOMALY [None]
  - HYPERTONIA [None]
  - MATERNAL DRUGS AFFECTING FOETUS [None]
